FAERS Safety Report 7392959-8 (Version None)
Quarter: 2011Q2

REPORT INFORMATION
  Report Type: 
  Country: None (occurrence: None)
  Receive Date: 20110404
  Receipt Date: 20110325
  Transmission Date: 20111010
  Serious: Yes (Other)
  Sender: FDA-Public Use
  Company Number: US-CEPHALON-2011000372

PATIENT
  Sex: Female

DRUGS (2)
  1. NUVIGIL [Suspect]
     Indication: ASTHENIA
     Route: 048
     Dates: start: 20110119, end: 20110120
  2. NUVIGIL [Suspect]
     Indication: FATIGUE

REACTIONS (16)
  - MUSCULAR WEAKNESS [None]
  - DEPRESSION [None]
  - DECREASED APPETITE [None]
  - FATIGUE [None]
  - PALPITATIONS [None]
  - PARAESTHESIA ORAL [None]
  - NERVOUSNESS [None]
  - PANIC ATTACK [None]
  - DIARRHOEA [None]
  - PARAESTHESIA [None]
  - CHEST PAIN [None]
  - REFLUX GASTRITIS [None]
  - ANXIETY [None]
  - HYPOAESTHESIA [None]
  - BLOOD PRESSURE INCREASED [None]
  - INSOMNIA [None]
